FAERS Safety Report 10170985 (Version 1)
Quarter: 2014Q2

REPORT INFORMATION
  Report Type: Spontaneous
  Country: GB (occurrence: None)
  Receive Date: 20140424
  Receipt Date: 20140424
  Transmission Date: 20141212
  Serious: Yes (Other)
  Sender: FDA-Public Use
  Company Number: E2B_00001889

PATIENT
  Age: 81 Year
  Sex: Male

DRUGS (3)
  1. QUETIAPINE FUMARATE [Suspect]
     Indication: AGITATION
     Route: 048
     Dates: start: 201403
  2. QUETIAPINE FUMARATE [Suspect]
     Indication: ANXIETY
     Route: 048
     Dates: start: 201403
  3. QUETIAPINE FUMARATE [Suspect]
     Indication: CONFUSIONAL STATE
     Route: 048
     Dates: start: 201403

REACTIONS (2)
  - Depression [None]
  - Suicidal ideation [None]
